FAERS Safety Report 18090991 (Version 2)
Quarter: 2021Q3

REPORT INFORMATION
  Report Type: Spontaneous
  Country: NL (occurrence: NL)
  Receive Date: 20200730
  Receipt Date: 20210803
  Transmission Date: 20211014
  Serious: Yes (Hospitalization, Other)
  Sender: FDA-Public Use
  Company Number: GXKR2010NL09408

PATIENT
  Age: 16 Year
  Sex: Female

DRUGS (2)
  1. AMOXICILLIN TRIHYDRATE,POTASSIUM CLAVULANATE [Suspect]
     Active Substance: AMOXICILLIN\CLAVULANATE POTASSIUM
     Indication: TONSILLITIS
     Dosage: 625 MG, TID
     Route: 065
  2. EPINEPHRINE. [Suspect]
     Active Substance: EPINEPHRINE
     Indication: PRODUCT USED FOR UNKNOWN INDICATION
     Dosage: 0.25 MG, UNKNOWN
     Route: 042

REACTIONS (14)
  - Anaphylactic reaction [Unknown]
  - Arteriospasm coronary [Unknown]
  - Hypotension [Unknown]
  - Dyspnoea [Unknown]
  - Dysphagia [Unknown]
  - Rash erythematous [Unknown]
  - Lip swelling [Unknown]
  - Rash [Unknown]
  - Anaphylactic shock [Unknown]
  - Electrocardiogram ST segment elevation [Unknown]
  - Troponin T increased [Unknown]
  - Acute coronary syndrome [Unknown]
  - Hyperhidrosis [Recovered/Resolved]
  - Erythema [Unknown]
